FAERS Safety Report 5209557-4 (Version None)
Quarter: 2007Q1

REPORT INFORMATION
  Report Type: 
  Country: None (occurrence: None)
  Receive Date: 20070116
  Receipt Date: 20070104
  Transmission Date: 20070707
  Serious: Yes (Hospitalization, Other)
  Sender: FDA-Public Use
  Company Number: US-PFIZER INC-2007002248

PATIENT
  Sex: Female

DRUGS (4)
  1. CHANTIX [Suspect]
  2. XANAX [Concomitant]
  3. PAXIL [Concomitant]
  4. NEXIUM [Concomitant]

REACTIONS (3)
  - FALL [None]
  - SLEEP WALKING [None]
  - UPPER LIMB FRACTURE [None]
